FAERS Safety Report 15116817 (Version 1)
Quarter: 2018Q3

REPORT INFORMATION
  Report Type: Spontaneous
  Country: US (occurrence: US)
  Receive Date: 20180706
  Receipt Date: 20180706
  Transmission Date: 20181010
  Serious: Yes (Hospitalization)
  Sender: FDA-Public Use
  Company Number: US-NOVOPROD-607897

PATIENT
  Age: 88 Year
  Sex: Female

DRUGS (2)
  1. HUMALOG [Concomitant]
     Active Substance: INSULIN LISPRO
     Indication: PRODUCT USED FOR UNKNOWN INDICATION
  2. LEVEMIR [Suspect]
     Active Substance: INSULIN DETEMIR
     Indication: PRODUCT USED FOR UNKNOWN INDICATION
     Dosage: 20 U, UNK
     Route: 058

REACTIONS (2)
  - Brain operation [Unknown]
  - Blood glucose increased [Recovered/Resolved]

NARRATIVE: CASE EVENT DATE: 2018
